FAERS Safety Report 17567602 (Version 1)
Quarter: 2020Q1

REPORT INFORMATION
  Report Type: Spontaneous
  Country: US (occurrence: US)
  Receive Date: 20200320
  Receipt Date: 20200320
  Transmission Date: 20200409
  Serious: No
  Sender: FDA-Public Use
  Company Number: US-ASTRAZENECA-2020SE39369

PATIENT
  Sex: Female

DRUGS (1)
  1. NEXIUM 24HR [Suspect]
     Active Substance: ESOMEPRAZOLE MAGNESIUM
     Indication: ABDOMINAL PAIN UPPER
     Dosage: UNK (EVERY ONCE IN A WHILE)
     Route: 048

REACTIONS (3)
  - Hypoaesthesia [Unknown]
  - Increased appetite [Unknown]
  - Product use issue [Unknown]

NARRATIVE: CASE EVENT DATE: 20200313
